FAERS Safety Report 25638508 (Version 1)
Quarter: 2025Q3

REPORT INFORMATION
  Report Type: Spontaneous
  Country: EU (occurrence: EU)
  Receive Date: 20250804
  Receipt Date: 20250804
  Transmission Date: 20251020
  Serious: Yes (Hospitalization)
  Sender: MYLAN
  Company Number: EU-MYLANLABS-2025M1065428

PATIENT
  Age: 78 Year
  Sex: Female
  Weight: 56 kg

DRUGS (16)
  1. METFORMIN [Suspect]
     Active Substance: METFORMIN HYDROCHLORIDE
     Indication: Product used for unknown indication
  2. METFORMIN [Suspect]
     Active Substance: METFORMIN HYDROCHLORIDE
     Route: 065
  3. METFORMIN [Suspect]
     Active Substance: METFORMIN HYDROCHLORIDE
     Route: 065
  4. METFORMIN [Suspect]
     Active Substance: METFORMIN HYDROCHLORIDE
  5. EMPAGLIFLOZIN [Suspect]
     Active Substance: EMPAGLIFLOZIN
     Indication: Product used for unknown indication
  6. EMPAGLIFLOZIN [Suspect]
     Active Substance: EMPAGLIFLOZIN
     Route: 065
  7. EMPAGLIFLOZIN [Suspect]
     Active Substance: EMPAGLIFLOZIN
     Route: 065
  8. EMPAGLIFLOZIN [Suspect]
     Active Substance: EMPAGLIFLOZIN
  9. INSULIN ASPART [Suspect]
     Active Substance: INSULIN ASPART
     Indication: Product used for unknown indication
  10. INSULIN ASPART [Suspect]
     Active Substance: INSULIN ASPART
     Route: 065
  11. INSULIN ASPART [Suspect]
     Active Substance: INSULIN ASPART
     Route: 065
  12. INSULIN ASPART [Suspect]
     Active Substance: INSULIN ASPART
  13. INSULIN DEGLUDEC [Suspect]
     Active Substance: INSULIN DEGLUDEC
     Indication: Product used for unknown indication
  14. INSULIN DEGLUDEC [Suspect]
     Active Substance: INSULIN DEGLUDEC
     Route: 065
  15. INSULIN DEGLUDEC [Suspect]
     Active Substance: INSULIN DEGLUDEC
     Route: 065
  16. INSULIN DEGLUDEC [Suspect]
     Active Substance: INSULIN DEGLUDEC

REACTIONS (2)
  - Hospitalisation [Unknown]
  - Medication error [Unknown]

NARRATIVE: CASE EVENT DATE: 20250105
